FAERS Safety Report 5509727-1 (Version None)
Quarter: 2007Q4

REPORT INFORMATION
  Report Type: 
  Country: None (occurrence: None)
  Receive Date: 20071107
  Receipt Date: 20071107
  Transmission Date: 20080405
  Serious: Yes (Death)
  Sender: FDA-Public Use
  Company Number: None

PATIENT
  Age: 74 Year
  Sex: Female
  Weight: 63.5 kg

DRUGS (1)
  1. DEPODUR [Suspect]
     Indication: GENERAL ANAESTHESIA
     Dosage: DEPODUR 3MG X 1 EPIDURAL
     Route: 008
     Dates: start: 20071002

REACTIONS (3)
  - ANURIA [None]
  - HYPOTENSION [None]
  - RESPIRATORY DISTRESS [None]
